FAERS Safety Report 7545326-8 (Version None)
Quarter: 2011Q2

REPORT INFORMATION
  Report Type: 
  Country: None (occurrence: None)
  Receive Date: 20110614
  Receipt Date: 20110602
  Transmission Date: 20111010
  Serious: Yes (Hospitalization)
  Sender: FDA-Public Use
  Company Number: CA-ELI_LILLY_AND_COMPANY-CA201106000554

PATIENT
  Sex: Male

DRUGS (10)
  1. ZYPREXA [Suspect]
     Dosage: 5 MG, EACH EVENING
     Dates: start: 19971021
  2. PROZAC [Concomitant]
  3. LASIX [Concomitant]
  4. VALPROATE SODIUM [Concomitant]
  5. HALOPERIDOL [Concomitant]
  6. ZYPREXA [Suspect]
     Indication: SCHIZOPHRENIA
     Dosage: 15 MG, EACH EVENING
     Dates: start: 19980102
  7. ZYPREXA [Suspect]
     Dosage: 20 MG, UNK
  8. ZYPREXA [Suspect]
     Dosage: 7.5 MG, QD
  9. RISPERDAL [Concomitant]
  10. LORAZEPAM [Concomitant]

REACTIONS (7)
  - HYPERPROLACTINAEMIA [None]
  - RENAL FAILURE [None]
  - DIABETES MELLITUS [None]
  - HEPATIC STEATOSIS [None]
  - HYPERTRIGLYCERIDAEMIA [None]
  - HAEMATURIA [None]
  - RENAL ARTERY OCCLUSION [None]
